FAERS Safety Report 21847239 (Version 3)
Quarter: 2023Q2

REPORT INFORMATION
  Report Type: Spontaneous
  Country: DE (occurrence: DE)
  Receive Date: 20230111
  Receipt Date: 20230607
  Transmission Date: 20230722
  Serious: Yes (Hospitalization, Other)
  Sender: FDA-Public Use
  Company Number: DE-ABBVIE-4228004

PATIENT
  Age: 44 Year
  Sex: Female

DRUGS (19)
  1. BUPIVACAINE [Suspect]
     Active Substance: BUPIVACAINE
     Indication: Product used for unknown indication
     Dosage: UNK
     Route: 014
  2. RINVOQ [Suspect]
     Active Substance: UPADACITINIB
     Indication: Psoriatic arthropathy
     Dosage: 15 MILLIGRAM, ONCE A DAY
     Route: 048
     Dates: start: 20211029, end: 20220105
  3. RINVOQ [Suspect]
     Active Substance: UPADACITINIB
     Dosage: 15 MILLIGRAM, ONCE A DAY
     Route: 048
     Dates: start: 20220209, end: 20220421
  4. RINVOQ [Suspect]
     Active Substance: UPADACITINIB
     Dosage: 15 MILLIGRAM, ONCE A DAY
     Route: 048
     Dates: start: 20220527, end: 20220603
  5. SIMPONI [Suspect]
     Active Substance: GOLIMUMAB
     Indication: Product used for unknown indication
     Dosage: 50 MILLIGRAM, 4 WEEK
     Route: 065
     Dates: start: 20220209
  6. TREMFYA [Suspect]
     Active Substance: GUSELKUMAB
     Indication: Product used for unknown indication
     Dosage: 100 MILLIGRAM, 8 WEEK
     Route: 065
     Dates: start: 20220309
  7. TREMFYA [Suspect]
     Active Substance: GUSELKUMAB
     Dosage: 100 MILLIGRAM
     Route: 065
     Dates: start: 20210831, end: 20210928
  8. INFLIXIMAB [Suspect]
     Active Substance: INFLIXIMAB
     Indication: Product used for unknown indication
     Dosage: 800 MILLIGRAM, 2 WEEK
     Route: 065
     Dates: start: 20220106, end: 20220120
  9. BISOPROLOL [Concomitant]
     Active Substance: BISOPROLOL
     Indication: Product used for unknown indication
     Dosage: UNK
     Route: 065
  10. ETORICOXIB [Concomitant]
     Active Substance: ETORICOXIB
     Indication: Product used for unknown indication
     Dosage: 120 MILLIGRAM (0.14 WEEK)
     Route: 065
     Dates: start: 20211214, end: 20220218
  11. ETORICOXIB [Concomitant]
     Active Substance: ETORICOXIB
     Dosage: 120 MILLIGRAM, ONCE A DAY
     Route: 065
     Dates: start: 20220227
  12. ETORICOXIB [Concomitant]
     Active Substance: ETORICOXIB
     Dosage: 90 MILLIGRAM
     Route: 065
     Dates: start: 20190201, end: 20190301
  13. ETORICOXIB [Concomitant]
     Active Substance: ETORICOXIB
     Dosage: 90 MILLIGRAM
     Route: 065
     Dates: start: 20171121, end: 20180903
  14. PANTOPRAZOLE [Concomitant]
     Active Substance: PANTOPRAZOLE
     Indication: Product used for unknown indication
     Dosage: UNK
     Route: 065
  15. STELARA [Concomitant]
     Active Substance: USTEKINUMAB
     Indication: Product used for unknown indication
     Dosage: 90 MILLIGRAM
     Route: 065
     Dates: start: 20171124, end: 20180119
  16. STELARA [Concomitant]
     Active Substance: USTEKINUMAB
     Dosage: 45 MILLIGRAM, 12 WEEKS
     Route: 065
     Dates: start: 20190615, end: 20191215
  17. STELARA [Concomitant]
     Active Substance: USTEKINUMAB
     Dosage: 45 MILLIGRAM, 12 WEEKS
     Route: 065
     Dates: start: 20211223, end: 20211223
  18. CALCIUM\ERGOCALCIFEROL [Concomitant]
     Active Substance: CALCIUM\ERGOCALCIFEROL
     Indication: Product used for unknown indication
     Dosage: UNK
     Route: 065
  19. SKYRIZI [Suspect]
     Active Substance: RISANKIZUMAB-RZAA
     Indication: Product used for unknown indication
     Dosage: 150 MILLIGRAM (FORM OF ADMINISTRATION 150 MG)
     Route: 065
     Dates: start: 20220630, end: 20220728

REACTIONS (13)
  - Psoriatic arthropathy [Recovered/Resolved]
  - Staphylococcal infection [Unknown]
  - Arthralgia [Recovered/Resolved]
  - Drug hypersensitivity [Recovered/Resolved]
  - Drug eruption [Recovered/Resolved]
  - Axial spondyloarthritis [Recovered/Resolved]
  - Pyelocaliectasis [Unknown]
  - Dyspnoea [Unknown]
  - Pruritus [Unknown]
  - Chest pain [Unknown]
  - Sinusitis [Unknown]
  - Heart valve incompetence [Unknown]
  - COVID-19 [Unknown]

NARRATIVE: CASE EVENT DATE: 20220101
